FAERS Safety Report 25558751 (Version 1)
Quarter: 2025Q3

REPORT INFORMATION
  Report Type: Spontaneous
  Country: US (occurrence: US)
  Receive Date: 20250715
  Receipt Date: 20250715
  Transmission Date: 20251020
  Serious: No
  Sender: NOVO NORDISK
  Company Number: US-NOVOPROD-1437543

PATIENT
  Sex: Female

DRUGS (1)
  1. OZEMPIC [Suspect]
     Active Substance: SEMAGLUTIDE
     Indication: Product used for unknown indication

REACTIONS (7)
  - Insomnia [Unknown]
  - Hunger [Unknown]
  - Sluggishness [Unknown]
  - Asthenia [Unknown]
  - Hyperphagia [Unknown]
  - Fatigue [Unknown]
  - Heart rate increased [Unknown]
